FAERS Safety Report 7598329-1 (Version None)
Quarter: 2011Q3

REPORT INFORMATION
  Report Type: 
  Country: None (occurrence: None)
  Receive Date: 20110708
  Receipt Date: 20110627
  Transmission Date: 20111222
  Serious: Yes (Hospitalization, Other)
  Sender: FDA-Public Use
  Company Number: PHHY2011US57070

PATIENT
  Sex: Female

DRUGS (3)
  1. PENICILLIN [Concomitant]
     Dosage: UNK UKN, UNK
  2. COUMADIN [Concomitant]
     Dosage: UNK UKN, UNK
  3. ZOMETA [Suspect]
     Indication: MULTIPLE MYELOMA
     Route: 042
     Dates: start: 20080104, end: 20110411

REACTIONS (6)
  - INTERNATIONAL NORMALISED RATIO INCREASED [None]
  - FALL [None]
  - PNEUMONIA [None]
  - HAEMOPTYSIS [None]
  - OSTEONECROSIS [None]
  - CONTUSION [None]
